FAERS Safety Report 5486280-2 (Version None)
Quarter: 2007Q4

REPORT INFORMATION
  Report Type: 
  Country: None (occurrence: None)
  Receive Date: 20071016
  Receipt Date: 20071008
  Transmission Date: 20080405
  Serious: Yes (Disabling)
  Sender: FDA-Public Use
  Company Number: PHBS2007CN16691

PATIENT
  Sex: Female

DRUGS (2)
  1. LOTENSIN [Suspect]
     Dosage: 5 MG, QD
     Route: 048
  2. ISOSORBIDE DINITRATE [Concomitant]

REACTIONS (1)
  - WALKING DISABILITY [None]
